FAERS Safety Report 9988609 (Version 5)
Quarter: 2014Q2

REPORT INFORMATION
  Report Type: Report from Study
  Country: US (occurrence: US)
  Receive Date: 20140310
  Receipt Date: 20140509
  Transmission Date: 20141212
  Serious: Yes (Hospitalization, Other)
  Sender: FDA-Public Use
  Company Number: US-ROCHE-1343681

PATIENT
  Age: 80 Year
  Sex: Female
  Weight: 49.94 kg

DRUGS (12)
  1. ACTEMRA [Suspect]
     Indication: RHEUMATOID ARTHRITIS
     Dosage: 19 MONTHS OF THERAPY
     Route: 042
     Dates: start: 2011
  2. ACTEMRA [Suspect]
     Route: 042
     Dates: start: 201207
  3. ACTEMRA [Suspect]
     Dosage: THE PATIENT RECEIVED MOST RECENT INFUSION ON 02/JAN/2014.
     Route: 042
     Dates: start: 201209
  4. ACTEMRA [Suspect]
     Route: 042
     Dates: start: 201401
  5. ACTEMRA [Suspect]
     Route: 042
     Dates: start: 201312
  6. ACTEMRA [Suspect]
     Route: 042
     Dates: start: 201311
  7. GABAPENTIN [Concomitant]
     Route: 065
  8. BABY ASA [Concomitant]
     Route: 065
  9. PREDNISONE [Concomitant]
     Indication: RHEUMATOID ARTHRITIS
     Route: 048
     Dates: start: 201202, end: 201309
  10. LISINOPRIL [Concomitant]
     Indication: HYPERTENSION
  11. METFORMIN [Concomitant]
     Indication: DIABETES MELLITUS
     Route: 065
  12. VOLTAREN [Concomitant]
     Indication: RHEUMATOID ARTHRITIS
     Route: 065
     Dates: start: 20140224, end: 20140226

REACTIONS (26)
  - Duodenal ulcer [Unknown]
  - Anaemia [Recovering/Resolving]
  - Musculoskeletal stiffness [Not Recovered/Not Resolved]
  - Bone contusion [Recovering/Resolving]
  - Fall [Unknown]
  - Rectal haemorrhage [Unknown]
  - Rhinorrhoea [Not Recovered/Not Resolved]
  - Pruritus [Not Recovered/Not Resolved]
  - Rash [Not Recovered/Not Resolved]
  - Decreased appetite [Not Recovered/Not Resolved]
  - Arthralgia [Unknown]
  - Joint swelling [Unknown]
  - Respiratory tract infection [Not Recovered/Not Resolved]
  - Decreased appetite [Not Recovered/Not Resolved]
  - Weight decreased [Not Recovered/Not Resolved]
  - Abdominal pain upper [Not Recovered/Not Resolved]
  - Diarrhoea [Not Recovered/Not Resolved]
  - Pain in extremity [Unknown]
  - Asthenia [Unknown]
  - Faeces discoloured [Unknown]
  - Gout [Unknown]
  - Respiratory disorder [Not Recovered/Not Resolved]
  - Eczema [Not Recovered/Not Resolved]
  - Ulcer haemorrhage [Unknown]
  - Full blood count decreased [Unknown]
  - Joint swelling [Unknown]
